FAERS Safety Report 8593759-3 (Version None)
Quarter: 2012Q3

REPORT INFORMATION
  Report Type: 
  Country: None (occurrence: None)
  Receive Date: 20120814
  Receipt Date: 20120801
  Transmission Date: 20120928
  Serious: Yes (Hospitalization, Other)
  Sender: FDA-Public Use
  Company Number: FR-ACTELION-A-US2012-69535

PATIENT
  Age: 52 Year
  Sex: Male
  Weight: 75 kg

DRUGS (8)
  1. TRACLEER [Concomitant]
     Indication: PULMONARY ARTERIAL HYPERTENSION
     Dosage: UNK
     Route: 048
     Dates: start: 20071217
  2. FUROSEMIDE [Concomitant]
     Dosage: UNK
     Dates: start: 20071228
  3. SILDENAFIL [Concomitant]
     Dosage: UNK
     Dates: start: 20071217
  4. EPOPROSTENOL SODIUM [Suspect]
     Indication: PULMONARY ARTERIAL HYPERTENSION
     Dosage: 23 NG/KG, PER MIN
     Route: 042
     Dates: start: 20110412
  5. FLUINDIONE [Concomitant]
     Dosage: UNK
     Dates: start: 20071228
  6. SPIRONOLACTONE [Concomitant]
     Dosage: UNK
     Dates: start: 20071228
  7. DILTIAZEM HCL [Concomitant]
     Dosage: UNK
     Dates: start: 20071217
  8. POTASSIUM CHLORIDE [Concomitant]
     Dosage: UNK
     Dates: start: 20071228

REACTIONS (6)
  - DEVICE OCCLUSION [None]
  - PRODUCT QUALITY ISSUE [None]
  - DYSPNOEA [None]
  - PRODUCT DEPOSIT [None]
  - DEVICE ALARM ISSUE [None]
  - FATIGUE [None]
